FAERS Safety Report 22000570 (Version 4)
Quarter: 2023Q2

REPORT INFORMATION
  Report Type: Spontaneous
  Country: US (occurrence: US)
  Receive Date: 20230216
  Receipt Date: 20230406
  Transmission Date: 20230722
  Serious: No
  Sender: FDA-Public Use
  Company Number: US-PFIZER INC-202300066503

PATIENT
  Age: 70 Year
  Sex: Female
  Weight: 97.52 kg

DRUGS (2)
  1. SOMAVERT [Suspect]
     Active Substance: PEGVISOMANT
     Indication: Pituitary tumour
     Dosage: 20 MG, DAILY
  2. LANREOTIDE [Concomitant]
     Active Substance: LANREOTIDE
     Indication: Pituitary tumour
     Dosage: 90 MG, MONTHLY (90 MG ONCE A MONTH)

REACTIONS (1)
  - Off label use [Unknown]
